FAERS Safety Report 9070850 (Version 1)
Quarter: 2013Q1

REPORT INFORMATION
  Report Type: Spontaneous
  Country: TR (occurrence: TR)
  Receive Date: 20130129
  Receipt Date: 20130129
  Transmission Date: 20140127
  Serious: Yes (Hospitalization)
  Sender: FDA-Public Use
  Company Number: TR-MYLANLABS-2013S1001185

PATIENT
  Age: 42 Year
  Sex: Male

DRUGS (3)
  1. PEGANUM [Suspect]
     Indication: HAEMORRHOIDS
     Dosage: ONE SPOONFUL
     Route: 065
  2. FLUOXETINE [Interacting]
     Indication: AFFECTIVE DISORDER
     Dosage: 40 MG/DAY
     Route: 065
  3. QUETIAPINE [Concomitant]
     Indication: AFFECTIVE DISORDER
     Dosage: 1000 MG/DAY
     Route: 065

REACTIONS (4)
  - Serotonin syndrome [Recovered/Resolved]
  - Drug interaction [Recovered/Resolved]
  - Blood calcium decreased [None]
  - Blood potassium decreased [None]
